FAERS Safety Report 9348554 (Version 1)
Quarter: 2013Q2

REPORT INFORMATION
  Report Type: Spontaneous
  Country: US (occurrence: None)
  Receive Date: 20130613
  Receipt Date: 20130613
  Transmission Date: 20140414
  Serious: No
  Sender: FDA-Public Use
  Company Number: None

PATIENT
  Age: 83 Year
  Sex: Female
  Weight: 74.84 kg

DRUGS (1)
  1. XARELTO [Suspect]
     Indication: HEART RATE IRREGULAR
     Dosage: 20 MG ONE DOSE AFTER SUPPER MEAL
     Dates: start: 20130417, end: 20130519

REACTIONS (2)
  - Blister [None]
  - Skin exfoliation [None]
